FAERS Safety Report 19731927 (Version 2)
Quarter: 2021Q4

REPORT INFORMATION
  Report Type: Report from Study
  Country: DE (occurrence: DE)
  Receive Date: 20210820
  Receipt Date: 20211118
  Transmission Date: 20220303
  Serious: Yes (Hospitalization)
  Sender: FDA-Public Use
  Company Number: DE-TEVA-2021-DE-1943830

PATIENT
  Sex: Female

DRUGS (3)
  1. METHOTREXATE [Suspect]
     Active Substance: METHOTREXATE
     Indication: Axial spondyloarthritis
     Route: 058
     Dates: start: 20190802
  2. CELECOXIB [Suspect]
     Active Substance: CELECOXIB
     Indication: Axial spondyloarthritis
     Dosage: 400 MILLIGRAM DAILY;
     Route: 065
     Dates: start: 20191104, end: 20200809
  3. ADALIMUMAB [Suspect]
     Active Substance: ADALIMUMAB
     Indication: Axial spondyloarthritis
     Route: 065
     Dates: start: 20200520, end: 20200804

REACTIONS (2)
  - Synovial rupture [Recovered/Resolved]
  - Erysipelas [Recovered/Resolved]

NARRATIVE: CASE EVENT DATE: 20200804
